FAERS Safety Report 9265917 (Version 3)
Quarter: 2013Q3

REPORT INFORMATION
  Report Type: Spontaneous
  Country: US (occurrence: US)
  Receive Date: 20130501
  Receipt Date: 20130731
  Transmission Date: 20140515
  Serious: Yes (Other)
  Sender: FDA-Public Use
  Company Number: CHPA2013US007195

PATIENT
  Age: 65 Year
  Sex: Female

DRUGS (3)
  1. TAVIST ALLERGY (FORMERLY TAVIST-1) TABS [Suspect]
     Indication: SEASONAL ALLERGY
     Dosage: 1-2 DF, QD
     Route: 048
     Dates: end: 2012
  2. PLAVIX [Concomitant]
  3. BABY ASPIRIN [Concomitant]
     Dosage: 80 MG, UNK

REACTIONS (7)
  - Sleep apnoea syndrome [Recovering/Resolving]
  - Hypertension [Recovering/Resolving]
  - Blood cholesterol increased [Recovering/Resolving]
  - Nephrolithiasis [Recovered/Resolved]
  - Hypersensitivity [Not Recovered/Not Resolved]
  - Disease recurrence [Not Recovered/Not Resolved]
  - Incorrect drug administration duration [Unknown]
